FAERS Safety Report 4493819-2 (Version None)
Quarter: 2004Q4

REPORT INFORMATION
  Report Type: 
  Country: None (occurrence: None)
  Receive Date: 20041102
  Receipt Date: 20041019
  Transmission Date: 20050328
  Serious: Yes (Hospitalization)
  Sender: FDA-Public Use
  Company Number: A03200403515

PATIENT
  Sex: Male

DRUGS (2)
  1. ELIGARD [Suspect]
     Dosage: 22.5 MG ONCE
     Dates: start: 20041006, end: 20041006
  2. LEVITRA [Suspect]
     Dates: start: 20041006

REACTIONS (2)
  - HEADACHE [None]
  - MEDICATION ERROR [None]
